FAERS Safety Report 8048310-3 (Version None)
Quarter: 2012Q1

REPORT INFORMATION
  Report Type: 
  Country: None (occurrence: None)
  Receive Date: 20120117
  Receipt Date: 20120112
  Transmission Date: 20120608
  Serious: Yes (Other)
  Sender: FDA-Public Use
  Company Number: US-PFIZER INC-2012010882

PATIENT
  Sex: Female
  Weight: 51.701 kg

DRUGS (9)
  1. NORCO [Concomitant]
     Indication: NEURALGIA
     Dosage: 10/325 MG, UNK
  2. SINGULAIR [Concomitant]
     Dosage: UNK
  3. METOPROLOL TARTRATE [Concomitant]
     Dosage: 50 MG, UNK
  4. PLAVIX [Concomitant]
     Indication: CARDIAC DISORDER
     Dosage: 75 MG, UNK
  5. LISINOPRIL AND HYDROCHLOROTHIAZIDE [Concomitant]
     Indication: DYSPNOEA
     Dosage: 10/12.5 MG, UNK
  6. MORPHINE [Concomitant]
     Indication: NEURALGIA
     Dosage: 60MG IN THE MORNING AND 30MG AT NIGHT
  7. CHANTIX [Suspect]
     Indication: SMOKING CESSATION THERAPY
     Dosage: 0.5 MG, 2X/DAY
     Dates: start: 20120112
  8. METFORMIN HYDROCHLORIDE [Concomitant]
     Dosage: 500 MG, UNK
  9. LYRICA [Concomitant]
     Dosage: 75 MG, UNK

REACTIONS (2)
  - SUICIDAL IDEATION [None]
  - ABNORMAL DREAMS [None]
